FAERS Safety Report 5334195-2 (Version None)
Quarter: 2007Q2

REPORT INFORMATION
  Report Type: 
  Country: None (occurrence: None)
  Receive Date: 20070523
  Receipt Date: 20070523
  Transmission Date: 20071010
  Serious: Yes (Hospitalization)
  Sender: FDA-Public Use
  Company Number: None

PATIENT
  Sex: Male
  Weight: 53.2 kg

DRUGS (11)
  1. OXACILLIN [Suspect]
     Indication: OSTEOMYELITIS
     Dosage: 2GM EVERY 6 HOURS IV
     Route: 042
     Dates: start: 20070501, end: 20070515
  2. COLACE [Concomitant]
  3. MIRALAX POWD [Concomitant]
  4. FLOVENT [Concomitant]
  5. CLARITIN [Concomitant]
  6. SINGULAIR [Concomitant]
  7. ALBUTEROL [Concomitant]
  8. ACETAMINOPHEN W/COD [Concomitant]
  9. FLORANEX [Concomitant]
  10. CORDRAN [Concomitant]
  11. BENADRYL [Concomitant]

REACTIONS (2)
  - BACTERAEMIA [None]
  - NEUTROPENIA [None]
